FAERS Safety Report 8285679-9 (Version None)
Quarter: 2012Q2

REPORT INFORMATION
  Report Type: 
  Country: None (occurrence: None)
  Receive Date: 20120413
  Receipt Date: 20120409
  Transmission Date: 20120825
  Serious: Yes (Other)
  Sender: FDA-Public Use
  Company Number: PT-BAXTER-2012BH007719

PATIENT
  Age: 20 Year
  Sex: Male

DRUGS (3)
  1. EXTRANEAL [Suspect]
     Route: 033
     Dates: start: 20110825
  2. PHYSIONEAL 35 GLUCOSE 2,27% P/V/ 2,27 MG/ML [Suspect]
     Route: 033
     Dates: start: 20110825
  3. PHYSIOSOL IN PLASTIC CONTAINER [Suspect]
     Route: 033
     Dates: start: 20110825

REACTIONS (1)
  - PERITONITIS BACTERIAL [None]
